FAERS Safety Report 4838865-1 (Version None)
Quarter: 2005Q4

REPORT INFORMATION
  Report Type: 
  Country: None (occurrence: None)
  Receive Date: 20051129
  Receipt Date: 20050503
  Transmission Date: 20060501
  Serious: No
  Sender: FDA-Public Use
  Company Number: US-BRISTOL-MYERS SQUIBB COMPANY-12954541

PATIENT
  Age: 68 Year
  Sex: Female
  Weight: 65 kg

DRUGS (9)
  1. CHOLESTYRAMINE+ASPARTAME [Suspect]
     Indication: GASTROENTERITIS RADIATION
     Dates: start: 20050502
  2. PRAVACHOL [Concomitant]
  3. PREDNISOLONE [Concomitant]
  4. TOPROL-XL [Concomitant]
  5. ZANTAC [Concomitant]
  6. COLAZAL [Concomitant]
  7. LOMOTIL [Concomitant]
  8. TUMS [Concomitant]
  9. CIPRO [Concomitant]

REACTIONS (2)
  - ABDOMINAL PAIN UPPER [None]
  - FLATULENCE [None]
